FAERS Safety Report 5583814-4 (Version None)
Quarter: 2008Q1

REPORT INFORMATION
  Report Type: 
  Country: None (occurrence: None)
  Receive Date: 20080108
  Receipt Date: 20080103
  Transmission Date: 20080703
  Serious: Yes (Other)
  Sender: FDA-Public Use
  Company Number: FR-JNJFOC-20080100515

PATIENT
  Age: 33 Year
  Sex: Male

DRUGS (3)
  1. OROS METHYLPHENIDATE [Suspect]
     Indication: ATTENTION DEFICIT/HYPERACTIVITY DISORDER
  2. DISULFIRAM [Interacting]
     Indication: DRUG USE FOR UNKNOWN INDICATION
  3. VITAMINS [Concomitant]

REACTIONS (2)
  - DRUG INTERACTION [None]
  - PSYCHOTIC DISORDER [None]
